FAERS Safety Report 20495799 (Version 2)
Quarter: 2022Q1

REPORT INFORMATION
  Report Type: Report from Study
  Country: IN (occurrence: IN)
  Receive Date: 20220221
  Receipt Date: 20220224
  Transmission Date: 20220423
  Serious: Yes (Death, Other)
  Sender: FDA-Public Use
  Company Number: IN-JNJFOC-20220235394

PATIENT
  Age: 47 Year
  Sex: Male

DRUGS (2)
  1. DARZALEX [Suspect]
     Active Substance: DARATUMUMAB
     Indication: Plasma cell myeloma
     Route: 042
     Dates: start: 20211108, end: 20211207
  2. DARZALEX [Suspect]
     Active Substance: DARATUMUMAB
     Route: 042

REACTIONS (3)
  - Plasma cell myeloma [Fatal]
  - Drug ineffective [Unknown]
  - COVID-19 [Unknown]

NARRATIVE: CASE EVENT DATE: 20220108
